FAERS Safety Report 8115336-0 (Version None)
Quarter: 2012Q1

REPORT INFORMATION
  Report Type: 
  Country: None (occurrence: None)
  Receive Date: 20120206
  Receipt Date: 20120206
  Transmission Date: 20120608
  Serious: Yes (Disabling)
  Sender: FDA-Public Use
  Company Number: None

PATIENT
  Age: 63 Year
  Sex: Female
  Weight: 72.574 kg

DRUGS (1)
  1. THYROID TAB [Suspect]
     Indication: BLOOD THYROID STIMULATING HORMONE DECREASED
     Dosage: 3 GR. -180MG-
     Route: 048
     Dates: start: 20111215, end: 20120131

REACTIONS (2)
  - TREMOR [None]
  - PRODUCT FORMULATION ISSUE [None]
